FAERS Safety Report 13870307 (Version 4)
Quarter: 2017Q4

REPORT INFORMATION
  Report Type: Report from Study
  Country: US (occurrence: US)
  Receive Date: 20170815
  Receipt Date: 20171208
  Transmission Date: 20180320
  Serious: Yes (Hospitalization)
  Sender: FDA-Public Use
  Company Number: US-ACTELION-A-US2016-133790

PATIENT
  Age: 66 Year
  Sex: Male
  Weight: 132 kg

DRUGS (5)
  1. UPTRAVI [Suspect]
     Active Substance: SELEXIPAG
     Indication: PULMONARY ARTERIAL HYPERTENSION
     Dosage: 1000 MCG, BID
     Route: 048
  2. UPTRAVI [Suspect]
     Active Substance: SELEXIPAG
     Dosage: 1600 MCG, BID
     Route: 048
  3. TYVASO [Suspect]
     Active Substance: TREPROSTINIL
     Indication: PULMONARY ARTERIAL HYPERTENSION
     Dosage: 18-54 MCG, FOUR TIMES DAILY
     Route: 055
     Dates: start: 20140722
  4. OPSUMIT [Suspect]
     Active Substance: MACITENTAN
     Indication: PULMONARY ARTERIAL HYPERTENSION
     Dosage: 10 MG, QD
     Route: 048
     Dates: start: 20140408
  5. ADCIRCA [Concomitant]
     Active Substance: TADALAFIL

REACTIONS (19)
  - Feeling hot [Unknown]
  - Abdominal discomfort [Recovering/Resolving]
  - Dry mouth [Unknown]
  - Dyspnoea [Unknown]
  - Device related infection [Unknown]
  - Hypoaesthesia [Unknown]
  - Asthenia [Unknown]
  - Chest pain [Unknown]
  - Insomnia [Unknown]
  - Pain in extremity [Unknown]
  - Fatigue [Unknown]
  - Urinary tract infection [Unknown]
  - Diarrhoea [Recovering/Resolving]
  - Headache [Unknown]
  - Hot flush [Unknown]
  - Malaise [Unknown]
  - Cystitis [Unknown]
  - Blood glucose increased [Unknown]
  - Palpitations [Unknown]

NARRATIVE: CASE EVENT DATE: 201604
